FAERS Safety Report 4473476-1 (Version None)
Quarter: 2004Q3

REPORT INFORMATION
  Report Type: 
  Country: None (occurrence: None)
  Receive Date: 20040921
  Receipt Date: 20040123
  Transmission Date: 20050211
  Serious: Yes (Disabling, Other)
  Sender: FDA-Public Use
  Company Number: 2003036809

PATIENT
  Age: 69 Year
  Sex: Male

DRUGS (1)
  1. DILANTIN [Suspect]
     Indication: EPILEPSY
     Dosage: (DAILY), ORAL
     Route: 048
     Dates: start: 19600101

REACTIONS (1)
  - NEUROPATHY PERIPHERAL [None]
